FAERS Safety Report 5284796-5 (Version None)
Quarter: 2007Q2

REPORT INFORMATION
  Report Type: 
  Country: None (occurrence: None)
  Receive Date: 20070403
  Receipt Date: 20070322
  Transmission Date: 20071010
  Serious: Yes (Hospitalization)
  Sender: FDA-Public Use
  Company Number: US-ROCHE-490715

PATIENT
  Age: 56 Year
  Sex: Female
  Weight: 77.1 kg

DRUGS (2)
  1. PEGASYS [Suspect]
     Indication: HEPATITIS C
     Route: 058
  2. COPEGUS [Suspect]
     Indication: HEPATITIS C
     Route: 048

REACTIONS (8)
  - AMNESIA [None]
  - CHOLELITHIASIS [None]
  - ENCEPHALOPATHY [None]
  - GASTRIC ULCER [None]
  - LABORATORY TEST ABNORMAL [None]
  - OSTEONECROSIS [None]
  - PLATELET COUNT DECREASED [None]
  - VARICOSE VEIN [None]
